FAERS Safety Report 11235256 (Version 2)
Quarter: 2015Q3

REPORT INFORMATION
  Report Type: Report from Study
  Country: US (occurrence: US)
  Receive Date: 20150702
  Receipt Date: 20150721
  Transmission Date: 20151125
  Serious: Yes (Other)
  Sender: FDA-Public Use
  Company Number: US-BAXALTA-2015BLT000066

PATIENT

DRUGS (2)
  1. HUMAN NORMAL IMMUNOGLOBULIN; LIQUID [Suspect]
     Active Substance: HUMAN IMMUNOGLOBULIN G
     Indication: IMMUNODEFICIENCY COMMON VARIABLE
  2. HUMAN NORMAL IMMUNOGLOBULIN; LIQUID [Suspect]
     Active Substance: HUMAN IMMUNOGLOBULIN G
     Indication: PRIMARY IMMUNODEFICIENCY SYNDROME
     Dosage: UNK
     Route: 042
     Dates: start: 2015

REACTIONS (9)
  - Arthralgia [Unknown]
  - Nausea [Unknown]
  - Diabetes mellitus [Unknown]
  - Cerebral disorder [Unknown]
  - Malaise [Unknown]
  - Myalgia [Unknown]
  - Headache [Unknown]
  - Flushing [Unknown]
  - Vomiting [Unknown]
